FAERS Safety Report 23930383 (Version 2)
Quarter: 2024Q2

REPORT INFORMATION
  Report Type: Spontaneous
  Country: JP (occurrence: JP)
  Receive Date: 20240602
  Receipt Date: 20240606
  Transmission Date: 20240716
  Serious: Yes (Death, Hospitalization, Other)
  Sender: FDA-Public Use
  Company Number: None

PATIENT

DRUGS (1)
  1. NUCALA [Suspect]
     Active Substance: MEPOLIZUMAB
     Indication: Eosinophilic granulomatosis with polyangiitis
     Dosage: 300 MG, Q4W
     Route: 058
     Dates: start: 20240302, end: 20240430

REACTIONS (5)
  - COVID-19 [Unknown]
  - Clostridium difficile colitis [Unknown]
  - Small intestinal haemorrhage [Unknown]
  - Intestinal ulcer [Unknown]
  - Death [Fatal]

NARRATIVE: CASE EVENT DATE: 20240501
